FAERS Safety Report 6411813-9 (Version None)
Quarter: 2009Q4

REPORT INFORMATION
  Report Type: 
  Country: None (occurrence: None)
  Receive Date: 20091023
  Receipt Date: 20091015
  Transmission Date: 20100525
  Serious: Yes (Other)
  Sender: FDA-Public Use
  Company Number: NO-BRISTOL-MYERS SQUIBB COMPANY-14819072

PATIENT
  Age: 47 Year
  Sex: Female

DRUGS (7)
  1. ABILIFY [Suspect]
     Indication: BIPOLAR DISORDER
     Dates: start: 20090101, end: 20091001
  2. VALPROATE SODIUM [Concomitant]
  3. LITHIONIT [Concomitant]
  4. ENOXAPARIN SODIUM [Concomitant]
  5. CALCIGRAN [Concomitant]
  6. ETALPHA [Concomitant]
  7. LEVOTHYROXINE SODIUM [Concomitant]

REACTIONS (8)
  - DIZZINESS [None]
  - ERYTHEMA MULTIFORME [None]
  - FEELING HOT [None]
  - HEADACHE [None]
  - MYALGIA [None]
  - NAUSEA [None]
  - SINUS HEADACHE [None]
  - VOMITING [None]
